FAERS Safety Report 6460016-0 (Version None)
Quarter: 2009Q4

REPORT INFORMATION
  Report Type: 
  Country: None (occurrence: None)
  Receive Date: 20091129
  Receipt Date: 20091118
  Transmission Date: 20100525
  Serious: No
  Sender: FDA-Public Use
  Company Number: PHHY2009JP42158

PATIENT
  Sex: Male

DRUGS (6)
  1. AMN107 AMN+CAP [Suspect]
     Indication: CHRONIC MYELOID LEUKAEMIA
     Dosage: 800 MG/DAY
     Route: 048
     Dates: start: 20090515, end: 20090711
  2. AMN107 AMN+CAP [Suspect]
     Dosage: 400 MG/DAY
     Route: 048
     Dates: start: 20090724, end: 20090828
  3. AMN107 AMN+CAP [Suspect]
     Dosage: 800 MG/DAY
     Route: 048
     Dates: start: 20090829, end: 20090911
  4. HYDREA [Concomitant]
     Indication: CHRONIC MYELOID LEUKAEMIA
     Dosage: 2000 MG
     Route: 048
     Dates: start: 20080610, end: 20080701
  5. SPRYCEL [Concomitant]
     Indication: CHRONIC MYELOID LEUKAEMIA
     Dosage: 140 MG
     Route: 048
     Dates: start: 20090409, end: 20090513
  6. SPRYCEL [Concomitant]
     Dosage: 100 MG
     Route: 048
     Dates: start: 20090409, end: 20090513

REACTIONS (15)
  - BASOPHIL PERCENTAGE DECREASED [None]
  - BLAST CELL COUNT DECREASED [None]
  - EOSINOPHIL COUNT DECREASED [None]
  - GAMMA-GLUTAMYLTRANSFERASE INCREASED [None]
  - HAEMATOCRIT DECREASED [None]
  - HAEMOGLOBIN DECREASED [None]
  - LYMPHOCYTE PERCENTAGE DECREASED [None]
  - METAMYELOCYTE COUNT DECREASED [None]
  - MONOCYTE PERCENTAGE DECREASED [None]
  - MYELOCYTE COUNT DECREASED [None]
  - NEUTROPHIL COUNT DECREASED [None]
  - PLATELET COUNT DECREASED [None]
  - PROMYELOCYTE COUNT DECREASED [None]
  - RED BLOOD CELL COUNT DECREASED [None]
  - WHITE BLOOD CELL COUNT DECREASED [None]
